FAERS Safety Report 24631866 (Version 2)
Quarter: 2024Q4

REPORT INFORMATION
  Report Type: Report from Study
  Country: AT (occurrence: AT)
  Receive Date: 20241118
  Receipt Date: 20241208
  Transmission Date: 20250114
  Serious: Yes (Hospitalization, Other)
  Sender: ABBVIE
  Company Number: AT-ABBVIE-6007938

PATIENT
  Age: 72 Year
  Sex: Male
  Weight: 71 kg

DRUGS (5)
  1. FOSCARBIDOPA\FOSLEVODOPA [Suspect]
     Active Substance: FOSCARBIDOPA\FOSLEVODOPA
     Indication: Parkinson^s disease
     Dosage: CR 0.40 ML/H; CRIGH 0.43 ML/H; CRLOW 0.30 ML/H; ED 0.25 ML
     Route: 058
  2. FOSCARBIDOPA\FOSLEVODOPA [Suspect]
     Active Substance: FOSCARBIDOPA\FOSLEVODOPA
     Dosage: CR 0.42 ML/H; CRLOW 0.30 ML/H; CRHIGH 0.45 ML/H; ED 0.25 ML?END DATE: 2024
     Route: 058
     Dates: start: 20240403
  3. SERTRALINE HYDROCHLORIDE [Concomitant]
     Active Substance: SERTRALINE HYDROCHLORIDE
     Indication: Product used for unknown indication
     Dosage: FREQUENCY : 0,5-0-0-0
  4. soluble madopar [Concomitant]
     Indication: Product used for unknown indication
     Dosage: 100MG/25MG : FREQUENCY : 1-0-0-0
  5. MIRTAZAPINE [Concomitant]
     Active Substance: MIRTAZAPINE
     Indication: Product used for unknown indication
     Dosage: FREQUENCY : 0-0-0-1

REACTIONS (8)
  - Ophthalmic vascular thrombosis [Not Recovered/Not Resolved]
  - Hyperkinesia [Not Recovered/Not Resolved]
  - Blood pressure fluctuation [Not Recovered/Not Resolved]
  - Retinal vascular occlusion [Unknown]
  - Bradykinesia [Unknown]
  - Dysdiadochokinesis [Unknown]
  - Resting tremor [Unknown]
  - Ophthalmic vein thrombosis [Unknown]

NARRATIVE: CASE EVENT DATE: 20241001
